FAERS Safety Report 20000484 (Version 2)
Quarter: 2021Q4

REPORT INFORMATION
  Report Type: Report from Study
  Country: BR (occurrence: BR)
  Receive Date: 20211026
  Receipt Date: 20211129
  Transmission Date: 20220303
  Serious: Yes (Hospitalization, Disabling, Other)
  Sender: FDA-Public Use
  Company Number: BR-ABBVIE-21K-020-4132940-00

PATIENT
  Sex: Male

DRUGS (1)
  1. RINVOQ [Suspect]
     Active Substance: UPADACITINIB
     Indication: Rheumatoid arthritis
     Dosage: UNSPECIFIC DOSE
     Route: 048
     Dates: start: 20210626, end: 20211012

REACTIONS (10)
  - Pain in extremity [Unknown]
  - Peripheral swelling [Not Recovered/Not Resolved]
  - Gait inability [Recovered/Resolved]
  - Joint effusion [Unknown]
  - Sepsis [Recovered/Resolved]
  - Bone neoplasm [Not Recovered/Not Resolved]
  - Joint neoplasm [Not Recovered/Not Resolved]
  - Arthritis [Unknown]
  - Platelet count decreased [Unknown]
  - Red blood cell count decreased [Unknown]

NARRATIVE: CASE EVENT DATE: 20210101
